FAERS Safety Report 4841895-7 (Version None)
Quarter: 2005Q4

REPORT INFORMATION
  Report Type: 
  Country: None (occurrence: None)
  Receive Date: 20051130
  Receipt Date: 20050926
  Transmission Date: 20060501
  Serious: No
  Sender: FDA-Public Use
  Company Number: US-GLAXOSMITHKLINE-A0575921A

PATIENT
  Age: 35 Year
  Sex: Male
  Weight: 108.2 kg

DRUGS (6)
  1. WELLBUTRIN XL [Suspect]
     Indication: DEPRESSION
     Dosage: 300MG PER DAY
     Route: 048
     Dates: start: 20041201
  2. LEXAPRO [Concomitant]
     Indication: DEPRESSION
     Dosage: 10MG PER DAY
     Route: 048
     Dates: start: 20050701
  3. KLONOPIN [Concomitant]
     Indication: ANXIETY
     Dosage: .25MG TWICE PER DAY
     Route: 048
  4. DILTIAZEM HCL [Concomitant]
     Indication: MITRAL VALVE PROLAPSE
     Route: 048
  5. ASPIRIN [Concomitant]
     Dosage: 325MG PER DAY
     Route: 048
  6. MULTI-VITAMIN [Concomitant]
     Route: 048

REACTIONS (2)
  - DRUG INEFFECTIVE [None]
  - MEDICATION RESIDUE [None]
